FAERS Safety Report 12693943 (Version 1)
Quarter: 2016Q3

REPORT INFORMATION
  Report Type: Report from Study
  Country: CO (occurrence: CO)
  Receive Date: 20160829
  Receipt Date: 20160829
  Transmission Date: 20161109
  Serious: Yes (Hospitalization)
  Sender: FDA-Public Use
  Company Number: PHHY2016CO064940

PATIENT
  Age: 28 Year
  Sex: Female
  Weight: 60 kg

DRUGS (4)
  1. SANDOSTATIN LAR DEPOT [Suspect]
     Active Substance: OCTREOTIDE ACETATE
     Indication: ACROMEGALY
     Dosage: 20 MG, QMO
     Route: 030
     Dates: start: 20160216
  2. CABERGOLINE. [Concomitant]
     Active Substance: CABERGOLINE
     Indication: PAIN
     Dosage: 0.5 MG (1 DF ON WEDNESDAY AND 1 DF ON FRIDAY)
     Route: 048
  3. ACETAMINOPHEN. [Concomitant]
     Active Substance: ACETAMINOPHEN
     Indication: PAIN
     Dosage: 4 OR 6 DF, QD
     Route: 048
  4. CAFEINE [Concomitant]
     Active Substance: CAFFEINE
     Indication: PAIN
     Dosage: 4 DF, QD
     Route: 065

REACTIONS (4)
  - Vision blurred [Unknown]
  - Nausea [Unknown]
  - General physical health deterioration [Unknown]
  - Headache [Unknown]

NARRATIVE: CASE EVENT DATE: 20160422
